FAERS Safety Report 5343540-3 (Version None)
Quarter: 2007Q2

REPORT INFORMATION
  Report Type: 
  Country: None (occurrence: None)
  Receive Date: 20070604
  Receipt Date: 20070524
  Transmission Date: 20071010
  Serious: Yes (Hospitalization)
  Sender: FDA-Public Use
  Company Number: PHHO2007AR09070

PATIENT
  Age: 58 Year
  Sex: Female

DRUGS (1)
  1. ZELMAC / HTF 919A [Suspect]
     Indication: CONSTIPATION
     Dosage: ONE DAILY

REACTIONS (3)
  - COLONOSCOPY [None]
  - HAEMORRHOID OPERATION [None]
  - HAEMORRHOIDS [None]
